FAERS Safety Report 6604410-3 (Version None)
Quarter: 2010Q1

REPORT INFORMATION
  Report Type: 
  Country: None (occurrence: None)
  Receive Date: 20100226
  Receipt Date: 20091020
  Transmission Date: 20100710
  Serious: Yes (Other)
  Sender: FDA-Public Use
  Company Number: A0808873A

PATIENT
  Age: 30 Year
  Sex: Female

DRUGS (4)
  1. LAMICTAL CD [Suspect]
     Dosage: 100MG TWICE PER DAY
     Route: 048
     Dates: start: 20090730, end: 20090817
  2. FOLIC ACID [Concomitant]
  3. DEPAKOTE [Concomitant]
  4. ANTICONVULSANT [Concomitant]

REACTIONS (3)
  - RASH [None]
  - RASH ERYTHEMATOUS [None]
  - STEVENS-JOHNSON SYNDROME [None]
